FAERS Safety Report 26083603 (Version 1)
Quarter: 2025Q4

REPORT INFORMATION
  Report Type: Report from Study
  Country: JP (occurrence: JP)
  Receive Date: 20251124
  Receipt Date: 20251124
  Transmission Date: 20260118
  Serious: Yes (Death)
  Sender: PFIZER
  Company Number: JP-PFIZER INC-PV202500137744

PATIENT
  Age: 75 Year
  Sex: Male
  Weight: 57.4 kg

DRUGS (1)
  1. ELRANATAMAB [Suspect]
     Active Substance: ELRANATAMAB
     Indication: Plasma cell myeloma refractory
     Dosage: 76 ONCE EVERY 2 WEEKS
     Dates: start: 20250124, end: 20250312

REACTIONS (1)
  - Death [Fatal]

NARRATIVE: CASE EVENT DATE: 20250323
